FAERS Safety Report 7713320-X (Version None)
Quarter: 2011Q3

REPORT INFORMATION
  Report Type: 
  Country: None (occurrence: None)
  Receive Date: 20110826
  Receipt Date: 20110818
  Transmission Date: 20111222
  Serious: Yes (Other)
  Sender: FDA-Public Use
  Company Number: GB-JNJFOC-20110809295

PATIENT
  Age: 69 Year
  Sex: Female

DRUGS (3)
  1. INFLIXIMAB, RECOMBINANT [Suspect]
     Indication: RHEUMATOID ARTHRITIS
     Route: 042
     Dates: start: 20030604, end: 20061115
  2. METHOTREXATE [Concomitant]
     Dates: start: 20030604
  3. HYDROXYCHLOROQUINE [Concomitant]

REACTIONS (1)
  - BOWEN'S DISEASE [None]
